FAERS Safety Report 7554826-6 (Version None)
Quarter: 2011Q2

REPORT INFORMATION
  Report Type: 
  Country: None (occurrence: None)
  Receive Date: 20110617
  Receipt Date: 20110609
  Transmission Date: 20111010
  Serious: Yes (Hospitalization, Other)
  Sender: FDA-Public Use
  Company Number: FR-MERCK-1104FRA00049

PATIENT
  Age: 69 Year
  Sex: Male
  Weight: 94 kg

DRUGS (9)
  1. AMLODIPINE BESYLATE [Concomitant]
     Route: 065
  2. METFORMIN HCL [Suspect]
     Route: 048
     Dates: start: 20091021, end: 20110128
  3. JANUVIA [Suspect]
     Indication: TYPE 2 DIABETES MELLITUS
     Route: 048
     Dates: start: 20100114
  4. REPAGLINIDE [Concomitant]
     Indication: TYPE 2 DIABETES MELLITUS
     Route: 048
     Dates: start: 20110128
  5. POTASSIUM CHLORIDE [Concomitant]
     Route: 065
  6. FLUINDIONE [Concomitant]
     Route: 065
  7. METFORMIN HCL [Suspect]
     Indication: TYPE 2 DIABETES MELLITUS
     Route: 048
     Dates: start: 20090929, end: 20091021
  8. PRAZOSIN HYDROCHLORIDE [Concomitant]
     Route: 065
  9. ALLOPURINOL [Concomitant]
     Route: 065

REACTIONS (3)
  - RENAL FAILURE ACUTE [None]
  - ARTERIAL THROMBOSIS [None]
  - EXTREMITY NECROSIS [None]
